FAERS Safety Report 7811516-X (Version None)
Quarter: 2011Q4

REPORT INFORMATION
  Report Type: 
  Country: None (occurrence: None)
  Receive Date: 20111013
  Receipt Date: 20111013
  Transmission Date: 20120403
  Serious: Yes (Other)
  Sender: FDA-Public Use
  Company Number: None

PATIENT
  Age: 60 Year
  Sex: Male
  Weight: 104.32 kg

DRUGS (1)
  1. ABILIFY [Suspect]
     Indication: SCHIZOPHRENIA
     Dosage: 15-5MG
     Route: 048
     Dates: start: 20040801, end: 20111005

REACTIONS (3)
  - RIB FRACTURE [None]
  - MUSCLE CONTRACTIONS INVOLUNTARY [None]
  - JOINT DISLOCATION [None]
